FAERS Safety Report 4625056-2 (Version None)
Quarter: 2005Q1

REPORT INFORMATION
  Report Type: 
  Country: None (occurrence: None)
  Receive Date: 20050325
  Receipt Date: 20050201
  Transmission Date: 20050727
  Serious: No
  Sender: FDA-Public Use
  Company Number: US_0501109768

PATIENT
  Age: 68 Year
  Sex: Female
  Weight: 35 kg

DRUGS (6)
  1. FORTEO [Suspect]
     Indication: OSTEOPOROSIS
     Dosage: 20 UG/1 DAY
     Dates: start: 20040907
  2. CLIMARA [Concomitant]
  3. PEPCID [Concomitant]
  4. CALTRATE 600 PLUS [Concomitant]
  5. MULTI-VITAMIN [Concomitant]
  6. ESTRADIOL [Concomitant]

REACTIONS (10)
  - BLOOD PRESSURE FLUCTUATION [None]
  - ENDOSCOPY [None]
  - FATIGUE [None]
  - FEELING ABNORMAL [None]
  - GASTROOESOPHAGEAL REFLUX DISEASE [None]
  - HIATUS HERNIA [None]
  - HYPERTENSION [None]
  - INJECTION SITE HAEMORRHAGE [None]
  - INSOMNIA [None]
  - POLLAKIURIA [None]
